FAERS Safety Report 10484550 (Version 1)
Quarter: 2014Q3

REPORT INFORMATION
  Report Type: Spontaneous
  Country: NL (occurrence: NL)
  Receive Date: 20140930
  Receipt Date: 20140930
  Transmission Date: 20150326
  Serious: Yes (Other)
  Sender: FDA-Public Use
  Company Number: NL-PFIZER INC-2014267114

PATIENT
  Age: 13 Year
  Sex: Male

DRUGS (3)
  1. METOPROLOL SUCCINATE. [Concomitant]
     Active Substance: METOPROLOL SUCCINATE
     Dosage: 50 MG, 1X/DAY
     Dates: start: 20130603, end: 20140320
  2. ENALAPRIL HL [Concomitant]
     Dosage: 1 DF, 1X/DAY
     Dates: start: 20130801
  3. AMLODIPINE BESILATE [Suspect]
     Active Substance: AMLODIPINE BESYLATE
     Dosage: 5 MG, 1X/DAY
     Dates: start: 20130307

REACTIONS (1)
  - Growth retardation [Unknown]
